FAERS Safety Report 24443773 (Version 2)
Quarter: 2024Q4

REPORT INFORMATION
  Report Type: Report from Study
  Country: US (occurrence: US)
  Receive Date: 20241016
  Receipt Date: 20241017
  Transmission Date: 20250114
  Serious: No
  Sender: ROCHE
  Company Number: US-ROCHE-2244213

PATIENT
  Age: 65 Year
  Sex: Female

DRUGS (2)
  1. RITUXAN [Suspect]
     Active Substance: RITUXIMAB
     Indication: Chronic inflammatory demyelinating polyradiculoneuropathy
     Dosage: 500 MG SINGLE-USE VIAL, INFUSE 1000 MG INTRAVENOUSLY ON DAY(S) 1 AND DAY(S) 15, EVERY 6 MONTH
     Route: 042
     Dates: end: 20220707
  2. RITUXAN [Suspect]
     Active Substance: RITUXIMAB
     Indication: Pulmonary sarcoidosis
     Route: 042

REACTIONS (2)
  - Off label use [Unknown]
  - No adverse event [Unknown]
